FAERS Safety Report 17480765 (Version 2)
Quarter: 2020Q1

REPORT INFORMATION
  Report Type: Report from Study
  Country: None (occurrence: US)
  Receive Date: 20200301
  Receipt Date: 20200305
  Transmission Date: 20200409
  Serious: Yes (Death, Other)
  Sender: FDA-Public Use
  Company Number: US-ABBVIE-20K-163-3299614-00

PATIENT
  Age: 78 Year
  Sex: Male
  Weight: 59.02 kg

DRUGS (15)
  1. CARBAMAZEPINE. [Concomitant]
     Active Substance: CARBAMAZEPINE
     Indication: ANXIETY
  2. TAMSULOSIN [Concomitant]
     Active Substance: TAMSULOSIN
     Indication: BENIGN PROSTATIC HYPERPLASIA
  3. MAGNESIUM OXIDE. [Concomitant]
     Active Substance: MAGNESIUM OXIDE
     Indication: CARDIAC DISORDER
  4. ALEVE [Concomitant]
     Active Substance: NAPROXEN SODIUM
     Indication: BACK PAIN
  5. PROPAFENONE. [Concomitant]
     Active Substance: PROPAFENONE
     Indication: HEART RATE IRREGULAR
  6. CEPHALEXIN. [Concomitant]
     Active Substance: CEPHALEXIN
     Indication: PRODUCT USED FOR UNKNOWN INDICATION
     Dates: start: 202001
  7. BACLOFEN. [Concomitant]
     Active Substance: BACLOFEN
     Indication: MUSCLE SPASMS
  8. CLONAZEPAM. [Concomitant]
     Active Substance: CLONAZEPAM
     Indication: ANXIETY
  9. ACETAMINOPHEN. [Concomitant]
     Active Substance: ACETAMINOPHEN
     Indication: PAIN
  10. DONEPEZIL. [Concomitant]
     Active Substance: DONEPEZIL
     Indication: MEMORY IMPAIRMENT
  11. ALEVE [Concomitant]
     Active Substance: NAPROXEN SODIUM
     Indication: NECK PAIN
  12. DUOPA [Suspect]
     Active Substance: CARBIDOPA\LEVODOPA
     Indication: PRODUCT USED FOR UNKNOWN INDICATION
     Route: 050
     Dates: start: 20161206, end: 20200225
  13. ASPIRIN. [Concomitant]
     Active Substance: ASPIRIN
     Indication: CARDIAC DISORDER
  14. DIGOXIN. [Concomitant]
     Active Substance: DIGOXIN
     Indication: CARDIAC DISORDER
     Dates: end: 201809
  15. CLONAZEPAM. [Concomitant]
     Active Substance: CLONAZEPAM
     Indication: SEDATIVE THERAPY

REACTIONS (22)
  - Skin mass [Recovered/Resolved]
  - Scratch [Recovering/Resolving]
  - Fall [Not Recovered/Not Resolved]
  - Wound [Recovering/Resolving]
  - Asthenia [Not Recovered/Not Resolved]
  - Parkinson^s disease [Not Recovered/Not Resolved]
  - Mobility decreased [Not Recovered/Not Resolved]
  - Unevaluable event [Not Recovered/Not Resolved]
  - Loss of consciousness [Recovered/Resolved]
  - Body height decreased [Not Recovered/Not Resolved]
  - Weight decreased [Not Recovered/Not Resolved]
  - On and off phenomenon [Recovered/Resolved]
  - Posture abnormal [Not Recovered/Not Resolved]
  - Movement disorder [Not Recovered/Not Resolved]
  - Contusion [Not Recovered/Not Resolved]
  - Feeding disorder [Not Recovered/Not Resolved]
  - Fall [Unknown]
  - Pneumonia [Fatal]
  - Decubitus ulcer [Recovering/Resolving]
  - Cellulitis [Recovering/Resolving]
  - Dysphagia [Not Recovered/Not Resolved]
  - Rib fracture [Recovering/Resolving]

NARRATIVE: CASE EVENT DATE: 2016
